FAERS Safety Report 7091701-8 (Version None)
Quarter: 2010Q4

REPORT INFORMATION
  Report Type: 
  Country: None (occurrence: None)
  Receive Date: 20101109
  Receipt Date: 20090724
  Transmission Date: 20110411
  Serious: No
  Sender: FDA-Public Use
  Company Number: US-KINGPHARMUSA00001-K200900891

PATIENT
  Sex: Female
  Weight: 65.76 kg

DRUGS (4)
  1. FLECTOR [Suspect]
     Indication: ARTHRALGIA
     Dosage: 1 PATCH, BID
     Route: 061
     Dates: start: 20090713
  2. PLAVIX [Concomitant]
     Indication: CARDIAC DISORDER
     Dosage: UNK
  3. CHOLESTEROL- AND TRIGLYCERIDE REDUCERS [Concomitant]
     Indication: BLOOD CHOLESTEROL INCREASED
     Dosage: UNK
  4. ALLERGY MEDICATION [Concomitant]
     Indication: SEASONAL ALLERGY
     Dosage: UNK

REACTIONS (1)
  - DRUG INEFFECTIVE [None]
